FAERS Safety Report 4850143-3 (Version None)
Quarter: 2005Q4

REPORT INFORMATION
  Report Type: 
  Country: None (occurrence: None)
  Receive Date: 20051123
  Receipt Date: 20050223
  Transmission Date: 20060501
  Serious: Yes (Other)
  Sender: FDA-Public Use
  Company Number: 2005035649

PATIENT
  Age: 60 Year
  Sex: Male
  Weight: 68.0396 kg

DRUGS (4)
  1. LIPITOR [Suspect]
     Indication: HYPERLIPIDAEMIA
     Dosage: 10 MG (10 MG, 1 IN 1 D), ORAL
     Route: 048
     Dates: start: 20030101
  2. CLOPIDOGREL BISULFATE [Suspect]
     Indication: TRANSIENT ISCHAEMIC ATTACK
     Dosage: 75 MG (75 MG, 1 IN 1 D), ORAL
     Route: 048
     Dates: start: 20041101
  3. ASPIRIN [Suspect]
     Indication: TRANSIENT ISCHAEMIC ATTACK
     Dosage: 325 MG (325 MG, 1IN 1 D), ORAL
     Route: 048
     Dates: start: 20041101
  4. AMLODIPINE BESYLATE [Concomitant]

REACTIONS (3)
  - ABDOMINAL PAIN UPPER [None]
  - ALANINE AMINOTRANSFERASE INCREASED [None]
  - EYE HAEMORRHAGE [None]
